FAERS Safety Report 18071536 (Version 1)
Quarter: 2020Q3

REPORT INFORMATION
  Report Type: Spontaneous
  Country: JP (occurrence: JP)
  Receive Date: 20200727
  Receipt Date: 20200727
  Transmission Date: 20201103
  Serious: Yes (Death, Life-Threatening, Hospitalization, Other)
  Sender: FDA-Public Use
  Company Number: JP-STRIDES ARCOLAB LIMITED-2020SP008395

PATIENT
  Age: 57 Year
  Sex: Male

DRUGS (2)
  1. TACROLIMUS. [Suspect]
     Active Substance: TACROLIMUS
     Indication: MYASTHENIA GRAVIS
     Dosage: UNK
     Route: 065
  2. PREDNISOLONE. [Suspect]
     Active Substance: PREDNISOLONE
     Indication: MYASTHENIA GRAVIS
     Dosage: UNK
     Route: 065

REACTIONS (11)
  - Rectal perforation [Fatal]
  - Gastrointestinal perforation [Fatal]
  - Back pain [Unknown]
  - General physical health deterioration [Not Recovered/Not Resolved]
  - Abscess intestinal [Fatal]
  - Mycobacterium abscessus infection [Fatal]
  - Large intestine perforation [Fatal]
  - Off label use [Unknown]
  - Pneumonia [Fatal]
  - Spondylitis [Not Recovered/Not Resolved]
  - Pyrexia [Unknown]
